FAERS Safety Report 21118747 (Version 1)
Quarter: 2022Q3

REPORT INFORMATION
  Report Type: Spontaneous
  Country: ES (occurrence: ES)
  Receive Date: 20220722
  Receipt Date: 20220722
  Transmission Date: 20221026
  Serious: Yes (Congenital Anomaly)
  Sender: FDA-Public Use
  Company Number: None

PATIENT
  Age: 66 Year
  Sex: Female

DRUGS (10)
  1. ZOLEDRONIC ACID [Suspect]
     Active Substance: ZOLEDRONIC ACID
     Indication: Osteoporosis
     Dosage: 5.0 MG, ZOLEDRONIC ACID (1251A)
     Route: 065
     Dates: start: 20220602
  2. ACETAMINOPHEN\TRAMADOL HYDROCHLORIDE [Concomitant]
     Active Substance: ACETAMINOPHEN\TRAMADOL HYDROCHLORIDE
     Indication: Pain
     Dosage: 1.0 COMP DECOCE ,DILIBAN 75 MG/650 MG TABLETS, 60 TABLETS (BLISTERS)
     Dates: start: 20220602
  3. FOSFOMYCIN SODIUM [Concomitant]
     Active Substance: FOSFOMYCIN SODIUM
     Indication: Dysuria
     Dosage: 1500 MILLIGRAM DAILY; 500.0 MG EVERY 8 HOURS,24 CAPSULES, STRENGTH  :500MG
     Dates: start: 20220611
  4. OMEPRAZOL MABO [Concomitant]
     Indication: Duodenitis
     Dosage: 40.0 MG A-DECE, 56 CAPSULES (BOTTLE), STRENGTH  :40MG
     Dates: start: 20190701
  5. BISOPROLOL FUMARATE [Concomitant]
     Active Substance: BISOPROLOL FUMARATE
     Indication: Tobacco abuse
     Dosage: 2.5 MG DE, BISOPROLOL CINFA 2.5 MG TABLETS EFG, 28 TABLETS (PVC/PVDC-ALUMINUM BLISTER)
     Dates: start: 20220507
  6. HYDROCHLOROTHIAZIDE\IRBESARTAN [Concomitant]
     Active Substance: HYDROCHLOROTHIAZIDE\IRBESARTAN
     Indication: Essential hypertension
     Dosage: 300.0 MG DE, STRENGTH : 300MG/12.5MG , 28 TABLETS
     Dates: start: 20081105
  7. NOLOTIL [Concomitant]
     Indication: Pain
     Dosage: 1725 MILLIGRAM DAILY; 575.0 MG EVERY 8 HOURS , 20 CAPSULES, STRENGTH  :575MG
     Dates: start: 20220611
  8. PARACETAMOL CINFA [Concomitant]
     Indication: Pain
     Dosage: 3 GRAM DAILY; 1.0 G C/8 HOURS, PARACETAMOL CINFA 1 G TABLETS EFG, 40 TABLETS
     Dates: start: 20220602
  9. METFORMIN\SITAGLIPTIN [Concomitant]
     Active Substance: METFORMIN\SITAGLIPTIN
     Indication: Type 2 diabetes mellitus
     Dosage: 1.0 COMP DECE, STRENGTH : 50 MG/1000 MG,56 TABLETS
     Dates: start: 20211215
  10. ATORVASTATIN CALCIUM\EZETIMIBE [Concomitant]
     Active Substance: ATORVASTATIN CALCIUM\EZETIMIBE
     Indication: Hyperlipidaemia
     Dosage: 1 DOSAGE FORMS DAILY; 1.0 COMP C/24 H STRENGTH  :10 MG/40 MG, 30 TABLETS
     Dates: start: 20170602

REACTIONS (1)
  - Renal tubular necrosis [Recovering/Resolving]

NARRATIVE: CASE EVENT DATE: 20220613
